FAERS Safety Report 5837335-1 (Version None)
Quarter: 2008Q3

REPORT INFORMATION
  Report Type: 
  Country: None (occurrence: None)
  Receive Date: 20080807
  Receipt Date: 20080728
  Transmission Date: 20090109
  Serious: Yes (Other)
  Sender: FDA-Public Use
  Company Number: PT-PFIZER INC-2008059140

PATIENT
  Sex: Female
  Weight: 55 kg

DRUGS (1)
  1. CYTOTEC [Suspect]
     Indication: ABORTION
     Route: 067
     Dates: start: 20071015, end: 20071015

REACTIONS (3)
  - ABORTION [None]
  - LICHENOID KERATOSIS [None]
  - OFF LABEL USE [None]
